FAERS Safety Report 18633580 (Version 1)
Quarter: 2020Q4

REPORT INFORMATION
  Report Type: Spontaneous
  Country: US (occurrence: US)
  Receive Date: 20201218
  Receipt Date: 20201218
  Transmission Date: 20210114
  Serious: No
  Sender: FDA-Public Use
  Company Number: US-KVK-TECH, INC-20201100005

PATIENT
  Sex: Female

DRUGS (1)
  1. LEFLUNOMIDE TABLETS, USP [Suspect]
     Active Substance: LEFLUNOMIDE
     Dosage: UNKNOWN DOSE

REACTIONS (1)
  - Adverse reaction [Unknown]
